FAERS Safety Report 25904673 (Version 1)
Quarter: 2025Q4

REPORT INFORMATION
  Report Type: Report from Study
  Country: US (occurrence: US)
  Receive Date: 20251010
  Receipt Date: 20251010
  Transmission Date: 20260119
  Serious: No
  Sender: ACADIA PHARMACEUTICALS
  Company Number: US-ACADIA PHARMACEUTICALS INC.-ACA-2025-PIM-011048

PATIENT
  Sex: Male

DRUGS (22)
  1. NUPLAZID [Suspect]
     Active Substance: PIMAVANSERIN TARTRATE
     Indication: Parkinson^s disease
     Dosage: 34 MILLIGRAM, QD
     Route: 048
     Dates: start: 20250621
  2. ALBUTEROL [Concomitant]
     Active Substance: ALBUTEROL
  3. AMLODIPINE [Concomitant]
     Active Substance: AMLODIPINE BESYLATE
  4. ATORVASTATIN [Concomitant]
     Active Substance: ATORVASTATIN
  5. BREZTRI AEROSPHERE [BUDESONIDE;FORMOTEROL FUMARATE DIHYDRATE;GLYCOPYRR [Concomitant]
  6. CLOPIDOGREL [Concomitant]
     Active Substance: CLOPIDOGREL BISULFATE
  7. ELIQUIS [Concomitant]
     Active Substance: APIXABAN
  8. ESOMEPRAZOLE [Concomitant]
     Active Substance: ESOMEPRAZOLE
  9. EZETIMIBE [Concomitant]
     Active Substance: EZETIMIBE
  10. JARDIANCE [Concomitant]
     Active Substance: EMPAGLIFLOZIN
  11. LABETALOL [Concomitant]
     Active Substance: LABETALOL
  12. OZEMPIC [Concomitant]
     Active Substance: SEMAGLUTIDE
  13. PRAZOSIN HYDROCHLORIDE [Concomitant]
     Active Substance: PRAZOSIN HYDROCHLORIDE
  14. QUETIAPINE [Concomitant]
     Active Substance: QUETIAPINE
  15. SINEMET [Concomitant]
     Active Substance: CARBIDOPA\LEVODOPA
  16. VITAMIN D3 [Concomitant]
     Active Substance: CHOLECALCIFEROL
  17. PREDNISONE [Concomitant]
     Active Substance: PREDNISONE
  18. HYDROCODONE BITARTRATE AND ACETAMINOPHEN [Concomitant]
     Active Substance: ACETAMINOPHEN\HYDROCODONE BITARTRATE
  19. CARISOPRODOL [Concomitant]
     Active Substance: CARISOPRODOL
  20. LYRICA [Concomitant]
     Active Substance: PREGABALIN
  21. ZOLPIDEM [Concomitant]
     Active Substance: ZOLPIDEM TARTRATE
  22. LIDODERM [Concomitant]
     Active Substance: LIDOCAINE

REACTIONS (2)
  - Vomiting [Not Recovered/Not Resolved]
  - Nausea [Not Recovered/Not Resolved]
